FAERS Safety Report 8601061-6 (Version None)
Quarter: 2012Q3

REPORT INFORMATION
  Report Type: 
  Country: None (occurrence: None)
  Receive Date: 20120817
  Receipt Date: 20120808
  Transmission Date: 20120928
  Serious: Yes (Death, Hospitalization)
  Sender: FDA-Public Use
  Company Number: FI-SANOFI-AVENTIS-2012SA031573

PATIENT
  Age: 77 Year
  Sex: Male

DRUGS (12)
  1. BISOPROLOL FUMARATE [Concomitant]
     Route: 048
  2. MAREVAN FORTE [Concomitant]
     Route: 048
  3. RIVATRIL [Concomitant]
     Route: 048
  4. TRIPTYL [Concomitant]
     Route: 048
  5. APURIN [Concomitant]
     Route: 048
  6. DOCETAXEL [Suspect]
     Indication: PROSTATE CANCER
     Route: 041
     Dates: start: 20120418, end: 20120418
  7. PREDNISOLONE [Suspect]
     Indication: PROSTATE CANCER
     Route: 048
     Dates: start: 20120418, end: 20120418
  8. ACETAMINOPHEN [Concomitant]
     Route: 048
  9. BETASERC [Concomitant]
     Route: 048
  10. POTASSIUM CHLORIDE [Concomitant]
     Route: 048
  11. ENALAPRIL MALEATE [Concomitant]
     Route: 048
  12. TAMSULOSIN HYDROCHLORIDE [Concomitant]
     Route: 048

REACTIONS (1)
  - NEUTROPENIC SEPSIS [None]
